FAERS Safety Report 9351332 (Version 1)
Quarter: 2013Q2

REPORT INFORMATION
  Report Type: Spontaneous
  Country: US (occurrence: US)
  Receive Date: 20130617
  Receipt Date: 20130617
  Transmission Date: 20140414
  Serious: Yes (Other)
  Sender: FDA-Public Use
  Company Number: US-FRI-1000045877

PATIENT
  Sex: Female

DRUGS (1)
  1. NAMENDA [Suspect]

REACTIONS (6)
  - Suicidal ideation [Unknown]
  - Loss of consciousness [Unknown]
  - Fall [Unknown]
  - Deafness [Unknown]
  - Headache [Unknown]
  - Dementia [Unknown]
